FAERS Safety Report 17496076 (Version 2)
Quarter: 2020Q1

REPORT INFORMATION
  Report Type: Spontaneous
  Country: US (occurrence: SI)
  Receive Date: 20200304
  Receipt Date: 20200306
  Transmission Date: 20200409
  Serious: Yes (Death, Other)
  Sender: FDA-Public Use
  Company Number: US-009507513-2003SVN000221

PATIENT
  Sex: Male
  Weight: 101 kg

DRUGS (6)
  1. FRAGMIN [Concomitant]
     Active Substance: DALTEPARIN SODIUM
  2. ELIQUIS [Concomitant]
     Active Substance: APIXABAN
  3. KEYTRUDA [Suspect]
     Active Substance: PEMBROLIZUMAB
     Indication: METASTATIC MALIGNANT MELANOMA
     Dosage: 200 MILLIGRAM, Q3W
     Dates: start: 20171116, end: 20180621
  4. BIOPREXANIL [Concomitant]
     Active Substance: PERINDOPRIL ARGININE
  5. LANITOP [Concomitant]
     Active Substance: METILDIGOXIN
  6. INSULIN [Concomitant]
     Active Substance: INSULIN NOS
     Indication: TYPE 2 DIABETES MELLITUS

REACTIONS (2)
  - Condition aggravated [Fatal]
  - Nephritis [Fatal]
